FAERS Safety Report 5089096-4 (Version None)
Quarter: 2006Q3

REPORT INFORMATION
  Report Type: 
  Country: None (occurrence: None)
  Receive Date: 20060822
  Receipt Date: 20060802
  Transmission Date: 20061208
  Serious: Yes (Hospitalization)
  Sender: FDA-Public Use
  Company Number: JP200607001385

PATIENT
  Age: 67 Year
  Sex: Female
  Weight: 50.4 kg

DRUGS (7)
  1. HUMALOG MIX 50/50 [Suspect]
     Indication: DIABETES MELLITUS NON-INSULIN-DEPENDENT
     Dosage: 8 U, 3/D
     Dates: end: 20050902
  2. HUMALOG MIX 50/50 [Suspect]
     Indication: DIABETES MELLITUS NON-INSULIN-DEPENDENT
     Dosage: 8 U, 3/D
     Dates: start: 20050623
  3. KREMEZIN (CHARCOAL ACTIVATED) GRANULE [Concomitant]
  4. CALCIUM POLYSTYRENE SULFONATE (CALCIUM POLYSTYRENE SULFONATE) JELLY [Concomitant]
  5. PARIET (RABEPRAZOLE SODIUM TABLET) [Concomitant]
  6. SELBEX (TEPRENONE) CAPSULE [Concomitant]
  7. LASIX [Concomitant]

REACTIONS (13)
  - BLOOD CHLORIDE DECREASED [None]
  - DECREASED APPETITE [None]
  - DEHYDRATION [None]
  - DIABETIC NEPHROPATHY [None]
  - DIARRHOEA [None]
  - FEELING ABNORMAL [None]
  - GLUCOSE URINE PRESENT [None]
  - HYPERGLYCAEMIA [None]
  - HYPOGLYCAEMIA [None]
  - HYPOXIA [None]
  - NASOPHARYNGITIS [None]
  - ORAL INTAKE REDUCED [None]
  - VOMITING [None]
